FAERS Safety Report 15019835 (Version 2)
Quarter: 2018Q4

REPORT INFORMATION
  Report Type: Spontaneous
  Country: US (occurrence: US)
  Receive Date: 20180618
  Receipt Date: 20181102
  Transmission Date: 20190204
  Serious: No
  Sender: FDA-Public Use
  Company Number: PHEH2018US023692

PATIENT
  Sex: Male

DRUGS (1)
  1. MEKINIST [Suspect]
     Active Substance: TRAMETINIB DIMETHYL SULFOXIDE
     Indication: METASTASES TO THE MEDIASTINUM
     Dosage: 2 MG, QD
     Route: 048
     Dates: start: 20180306

REACTIONS (3)
  - Acne [Unknown]
  - Erythema [Unknown]
  - Rash [Unknown]
